FAERS Safety Report 7689731-8 (Version None)
Quarter: 2011Q3

REPORT INFORMATION
  Report Type: 
  Country: None (occurrence: None)
  Receive Date: 20110817
  Receipt Date: 20110804
  Transmission Date: 20111222
  Serious: Yes (Hospitalization)
  Sender: FDA-Public Use
  Company Number: JP-CELGENEUS-087-21880-11023106

PATIENT
  Sex: Male

DRUGS (61)
  1. DEXAMETHASONE [Suspect]
     Indication: REFRACTORY CANCER
     Dosage: 20 MILLIGRAM
     Route: 048
     Dates: start: 20110226, end: 20110226
  2. ZOSYN [Concomitant]
     Indication: PROPHYLAXIS
     Dosage: 2.25 GRAM
     Route: 041
     Dates: start: 20101224, end: 20101229
  3. IMMUNE GLOBULIN NOS [Concomitant]
     Indication: PROPHYLAXIS
     Dosage: ADEQUATE DOSE
     Route: 062
     Dates: start: 20101216, end: 20110110
  4. IMMUNE GLOBULIN NOS [Concomitant]
     Dosage: QI
     Route: 062
     Dates: start: 20110111, end: 20110307
  5. OXYCONTIN [Concomitant]
     Dosage: 10 MILLIGRAM
     Route: 048
     Dates: start: 20110111, end: 20110307
  6. TETRAMIDE [Concomitant]
     Dosage: 10 MILLIGRAM
     Route: 048
     Dates: start: 20101222, end: 20101222
  7. SEROQUEL [Concomitant]
     Dosage: 50 MILLIGRAM
     Route: 048
     Dates: start: 20101225, end: 20101225
  8. LYRICA [Concomitant]
     Dosage: 75 MILLIGRAM
     Route: 048
     Dates: start: 20101227, end: 20110109
  9. REVLIMID [Suspect]
     Indication: REFRACTORY CANCER
     Dosage: 5 MILLIGRAM
     Route: 048
     Dates: start: 20101222, end: 20101228
  10. REVLIMID [Suspect]
     Dosage: 25 MILLIGRAM
     Route: 048
     Dates: start: 20110111, end: 20110124
  11. KAYTWO N [Concomitant]
     Dosage: 10 MILLIGRAM
     Route: 041
     Dates: start: 20101224, end: 20101229
  12. JU-KAMA [Concomitant]
     Indication: PROPHYLAXIS
     Dosage: 2 GRAM
     Route: 048
     Dates: start: 20101216, end: 20110110
  13. FUNGIZONE [Concomitant]
     Dosage: 16 MILLILITER
     Route: 048
     Dates: start: 20110111, end: 20110307
  14. PROCHLORPERAZINE [Concomitant]
     Dosage: 15 MILLIGRAM
     Route: 048
     Dates: start: 20110111, end: 20110307
  15. PURSENNID [Concomitant]
     Dosage: 24 MILLIGRAM
     Route: 048
     Dates: start: 20101216, end: 20110110
  16. DEXAMETHASONE [Concomitant]
     Dosage: 66 MILLIGRAM
     Route: 041
     Dates: start: 20110222, end: 20110304
  17. REVLIMID [Suspect]
     Dosage: 25 MILLIGRAM
     Route: 048
     Dates: start: 20110222, end: 20110307
  18. KYTRIL [Concomitant]
     Indication: PROPHYLAXIS
     Dosage: 3 MILLIGRAM
     Route: 041
     Dates: start: 20101221, end: 20101228
  19. ACYCRIL [Concomitant]
     Indication: PROPHYLAXIS
     Dosage: 500 MILLIGRAM
     Route: 041
     Dates: start: 20101224, end: 20110110
  20. OXINORM [Concomitant]
     Dosage: 5 MILLIGRAM
     Route: 048
     Dates: start: 20101216, end: 20101229
  21. OXYCONTIN [Concomitant]
     Dosage: 10 MILLIGRAM
     Route: 048
     Dates: start: 20101216, end: 20110110
  22. OMEPRAZOLE [Concomitant]
     Indication: PROPHYLAXIS
     Dosage: 20 MILLIGRAM
     Route: 048
     Dates: start: 20110111, end: 20110307
  23. VELCADE [Concomitant]
     Dosage: 7.78 MILLIGRAM/SQ. METER
     Route: 041
     Dates: start: 20110111, end: 20110121
  24. LASIX [Concomitant]
     Indication: CARDIAC FAILURE
     Dosage: 120 MILLIGRAM
     Route: 041
     Dates: start: 20101218, end: 20101229
  25. KENEI G [Concomitant]
     Dosage: 60 MILLILITER
     Route: 065
     Dates: start: 20110118, end: 20110118
  26. REVLIMID [Suspect]
     Indication: MULTIPLE MYELOMA
     Dosage: 25 MILLIGRAM
     Route: 048
     Dates: start: 20101221, end: 20101221
  27. ALLOPURINOL [Concomitant]
     Dosage: 100 MILLIGRAM
     Route: 048
     Dates: start: 20101221, end: 20110110
  28. CHLORPROMAZINE HCL [Concomitant]
     Dosage: 10 MILLIGRAM
     Route: 048
     Dates: start: 20101219, end: 20101225
  29. ASPIRIN [Concomitant]
     Indication: PROPHYLAXIS
     Dosage: 100 MILLIGRAM
     Route: 048
     Dates: start: 20101220, end: 20110110
  30. KENEI G [Concomitant]
     Dosage: 60 MILLILITER
     Route: 065
     Dates: start: 20101230, end: 20110103
  31. DEXAMETHASONE [Concomitant]
     Indication: MULTIPLE MYELOMA
     Dosage: 132 MILLIGRAM
     Route: 041
     Dates: start: 20110111, end: 20110121
  32. MAGNESIUM OXIDE [Concomitant]
     Dosage: 2.01 GRAM
     Route: 048
     Dates: start: 20110111, end: 20110307
  33. DEXAMETHASONE SODIUM PHOSPHATE [Concomitant]
     Indication: MULTIPLE MYELOMA
     Dosage: 16.5 MILLIGRAM
     Route: 041
     Dates: start: 20101221, end: 20101221
  34. VELCADE [Concomitant]
     Dosage: 7.78 MILLIGRAM/SQ. METER
     Route: 041
     Dates: start: 20110201, end: 20110211
  35. FUNGUARD [Concomitant]
     Indication: PROPHYLAXIS
     Dosage: 150 MILLIGRAM
     Route: 041
     Dates: start: 20101224, end: 20110104
  36. FUNGIZONE [Concomitant]
     Indication: PROPHYLAXIS
     Dosage: 16 MILLILITER
     Route: 048
     Dates: start: 20101216, end: 20110110
  37. DESYREL [Concomitant]
     Dosage: 50 MILLIGRAM
     Route: 048
     Dates: start: 20101222, end: 20110307
  38. ACETAMINOPHEN [Concomitant]
     Dosage: 400 MILLIGRAM
     Route: 048
     Dates: start: 20101223, end: 20101224
  39. ZYPREXA [Concomitant]
     Dosage: 5 MILLIGRAM
     Route: 048
     Dates: start: 20101225, end: 20101225
  40. DEXAMETHASONE [Concomitant]
     Indication: REFRACTORY CANCER
     Dosage: 132 MILLIGRAM
     Route: 041
     Dates: start: 20110201, end: 20110211
  41. MUCODYNE [Concomitant]
     Indication: PROPHYLAXIS
     Dosage: 1500 MILLIGRAM
     Route: 048
     Dates: start: 20110111, end: 20110307
  42. SULFAMETHOXAZOLE [Concomitant]
     Indication: PROPHYLAXIS
     Dosage: 1 GRAM
     Route: 048
     Dates: start: 20110111, end: 20110307
  43. ZOVIRAX [Concomitant]
     Indication: PROPHYLAXIS
     Dosage: 200 MILLIGRAM
     Route: 048
     Dates: start: 20110111, end: 20110307
  44. ISODINE GARGLE [Concomitant]
     Indication: PROPHYLAXIS
     Dosage: Q.I
     Route: 048
     Dates: start: 20110111, end: 20110307
  45. REVLIMID [Suspect]
     Dosage: 10 MILLIGRAM
     Route: 048
     Dates: start: 20101229, end: 20110104
  46. DEXAMETHASONE [Suspect]
     Dosage: 20 MILLIGRAM
     Route: 048
     Dates: start: 20110305, end: 20110305
  47. VELCADE [Concomitant]
     Dosage: 7.78 MILLIGRAM/SQ. METER
     Route: 041
     Dates: start: 20110222, end: 20110304
  48. KYTRIL [Concomitant]
     Dosage: 6 MILLIGRAM
     Route: 041
     Dates: start: 20110111, end: 20110304
  49. ALLOPURINOL [Concomitant]
     Indication: PROPHYLAXIS
     Dosage: 200 MILLIGRAM
     Route: 048
     Dates: start: 20101216, end: 20101220
  50. PROCHLORPERAZINE [Concomitant]
     Indication: PROPHYLAXIS
     Dosage: 15 MILLIGRAM
     Route: 048
     Dates: start: 20101216, end: 20110110
  51. PURSENNID [Concomitant]
     Dosage: 24 MILLIGRAM
     Route: 048
     Dates: start: 20110111, end: 20110307
  52. LAXOBERON [Concomitant]
     Dosage: 15 DROPS
     Route: 048
     Dates: start: 20101226, end: 20110105
  53. LECICARBON [Concomitant]
     Dosage: 1
     Route: 065
     Dates: start: 20101226, end: 20110307
  54. DEXAMETHASONE [Suspect]
     Indication: MULTIPLE MYELOMA
     Dosage: 20 MILLIGRAM
     Route: 048
     Dates: start: 20110223, end: 20110223
  55. DEXAMETHASONE [Suspect]
     Dosage: 20 MILLIGRAM
     Route: 048
     Dates: start: 20110302, end: 20110302
  56. DEXAMETHASONE SODIUM PHOSPHATE [Concomitant]
     Indication: REFRACTORY CANCER
     Dosage: 16.5 MILLIGRAM
     Route: 041
     Dates: start: 20101228, end: 20101228
  57. VELCADE [Concomitant]
     Indication: MULTIPLE MYELOMA
     Dosage: 1.3 MILLIGRAM/SQ. METER
     Route: 041
     Dates: start: 20101221, end: 20101221
  58. VELCADE [Concomitant]
     Indication: REFRACTORY CANCER
     Dosage: 1.3 MILLIGRAM/SQ. METER
     Route: 041
     Dates: start: 20101228, end: 20101228
  59. ROCEPHIN [Concomitant]
     Indication: PROPHYLAXIS
     Dosage: 1 GRAM
     Route: 041
     Dates: start: 20101223, end: 20101224
  60. GANCICLOVIR [Concomitant]
     Indication: PROPHYLAXIS
     Dosage: 125 MILLIGRAM
     Route: 041
     Dates: start: 20101224, end: 20101224
  61. MUCOSOLVAN [Concomitant]
     Indication: PROPHYLAXIS
     Dosage: 45 MILLIGRAM
     Route: 048
     Dates: start: 20110111, end: 20110307

REACTIONS (4)
  - LIVER FUNCTION TEST ABNORMAL [None]
  - GASTRITIS [None]
  - LEUKOENCEPHALOPATHY [None]
  - CYST [None]
